FAERS Safety Report 9377610 (Version 1)
Quarter: 2013Q2

REPORT INFORMATION
  Report Type: Spontaneous
  Country: FR (occurrence: None)
  Receive Date: 20130625
  Receipt Date: 20130625
  Transmission Date: 20140414
  Serious: Yes (Other)
  Sender: FDA-Public Use
  Company Number: 2013P1008668

PATIENT
  Age: 49 Year
  Sex: Male

DRUGS (3)
  1. SULFAMETHOXAZOLE AND TRIMETHOPRIM [Suspect]
     Indication: PNEUMOCYSTIS JIROVECII INFECTION
     Route: 042
  2. SOLUMEDROL [Concomitant]
  3. IVERMECTIN [Concomitant]

REACTIONS (3)
  - Histiocytosis haematophagic [None]
  - Haemodialysis [None]
  - Renal impairment [None]
